FAERS Safety Report 24096874 (Version 1)
Quarter: 2024Q3

REPORT INFORMATION
  Report Type: Spontaneous
  Country: US (occurrence: US)
  Receive Date: 20240716
  Receipt Date: 20240716
  Transmission Date: 20241016
  Serious: No
  Sender: GRIFOLS
  Company Number: US-IGSA-BIG0025965

PATIENT
  Sex: Female
  Weight: 56.7 kg

DRUGS (1)
  1. GAMUNEX-C [Suspect]
     Active Substance: HUMAN IMMUNOGLOBULIN G
     Indication: Immunodeficiency
     Dosage: UNK, B.I.WK.
     Route: 058
     Dates: start: 20230104

REACTIONS (1)
  - Pruritus [Not Recovered/Not Resolved]
